FAERS Safety Report 22296687 (Version 1)
Quarter: 2023Q2

REPORT INFORMATION
  Report Type: Spontaneous
  Country: IT (occurrence: IT)
  Receive Date: 20230508
  Receipt Date: 20230508
  Transmission Date: 20230722
  Serious: Yes (Other)
  Sender: FDA-Public Use
  Company Number: IT-BoehringerIngelheim-2023-BI-235056

PATIENT
  Age: 75 Year
  Sex: Female

DRUGS (8)
  1. AFATINIB [Suspect]
     Active Substance: AFATINIB
     Indication: EGFR gene mutation
     Route: 048
     Dates: start: 202110
  2. AFATINIB [Suspect]
     Active Substance: AFATINIB
     Indication: Squamous cell carcinoma of lung
  3. CYCLOPHOSPHAMIDE [Concomitant]
     Active Substance: CYCLOPHOSPHAMIDE
     Indication: Product used for unknown indication
  4. METHOTREXATE [Concomitant]
     Active Substance: METHOTREXATE
     Indication: Product used for unknown indication
  5. FLUOROURACIL [Concomitant]
     Active Substance: FLUOROURACIL
     Indication: Product used for unknown indication
  6. TAMOXIFEN [Concomitant]
     Active Substance: TAMOXIFEN
     Indication: Drug therapy
  7. LETROZOLE [Concomitant]
     Active Substance: LETROZOLE
     Indication: Endocrine disorder
     Dates: start: 201909
  8. ZOLEDRONIC ACID [Concomitant]
     Active Substance: ZOLEDRONIC ACID

REACTIONS (6)
  - Lung consolidation [Unknown]
  - Osteolysis [Unknown]
  - Therapy partial responder [Unknown]
  - Hypertransaminasaemia [Unknown]
  - Diarrhoea [Unknown]
  - Anaemia [Unknown]

NARRATIVE: CASE EVENT DATE: 20220101
